FAERS Safety Report 7089462-1 (Version None)
Quarter: 2010Q4

REPORT INFORMATION
  Report Type: 
  Country: None (occurrence: None)
  Receive Date: 20101108
  Receipt Date: 20101028
  Transmission Date: 20110411
  Serious: Yes (Other)
  Sender: FDA-Public Use
  Company Number: US-JNJFOC-20100502663

PATIENT
  Sex: Female
  Weight: 143.79 kg

DRUGS (1)
  1. LEVAQUIN [Suspect]
     Indication: WOUND INFECTION
     Route: 048

REACTIONS (6)
  - BURSITIS [None]
  - CARPAL TUNNEL SYNDROME [None]
  - MENISCUS LESION [None]
  - ROTATOR CUFF SYNDROME [None]
  - TENDONITIS [None]
  - TRIGGER FINGER [None]
